FAERS Safety Report 7402602 (Version 4)
Quarter: 2013Q4

REPORT INFORMATION
  Report Type: Spontaneous
  Country: US (occurrence: US)
  Receive Date: 20100528
  Receipt Date: 20131101
  Transmission Date: 20140711
  Serious: Yes (Other)
  Sender: FDA-Public Use
  Company Number: US-BAYER-201023567NA

PATIENT
  Age: 16 Year
  Sex: Female
  Weight: 69 kg

DRUGS (6)
  1. YAZ [Suspect]
     Indication: CONTRACEPTION
     Dosage: UNK
     Route: 048
     Dates: start: 20080428, end: 20090929
  2. YAZ [Suspect]
     Indication: MENSTRUATION IRREGULAR
  3. YASMIN [Suspect]
     Indication: CONTRACEPTION
     Dosage: UNK
     Route: 048
     Dates: end: 200909
  4. YASMIN [Suspect]
     Indication: MENSTRUATION IRREGULAR
  5. ADVIL [Concomitant]
     Indication: PAIN
     Dosage: UNK UNK, PRN
  6. DONNATAL [Concomitant]

REACTIONS (3)
  - Biliary dyskinesia [Unknown]
  - Injury [Unknown]
  - Pain [Unknown]
